FAERS Safety Report 13225739 (Version 1)
Quarter: 2017Q1

REPORT INFORMATION
  Report Type: Spontaneous
  Country: US (occurrence: US)
  Receive Date: 20170213
  Receipt Date: 20170213
  Transmission Date: 20170428
  Serious: No
  Sender: FDA-Public Use
  Company Number: US-BAYER-2017-027008

PATIENT
  Age: 82 Year
  Sex: Female

DRUGS (6)
  1. MIRALAX [Suspect]
     Active Substance: POLYETHYLENE GLYCOL 3350
     Indication: GASTROINTESTINAL DISORDER
     Route: 048
     Dates: start: 20170206
  2. ACETYLSALICYLIC ACID [Concomitant]
     Active Substance: ASPIRIN
     Indication: PROPHYLAXIS
     Dosage: 1 DF, QD
     Route: 048
  3. MULTIVITAMIN [Concomitant]
     Active Substance: VITAMINS
  4. LOSARTAN. [Concomitant]
     Active Substance: LOSARTAN
  5. CALCIUM +VIT D [Concomitant]
     Active Substance: CALCIUM\VITAMIN D
  6. VITAMIN D [Concomitant]
     Active Substance: CHOLECALCIFEROL

REACTIONS (3)
  - Rectal discharge [Unknown]
  - Drug ineffective [Unknown]
  - Abnormal faeces [Unknown]
